FAERS Safety Report 16786098 (Version 2)
Quarter: 2024Q1

REPORT INFORMATION
  Report Type: Spontaneous
  Country: US (occurrence: US)
  Receive Date: 20190909
  Receipt Date: 20240307
  Transmission Date: 20240410
  Serious: Yes (Hospitalization, Other)
  Sender: FDA-Public Use
  Company Number: US-VERTEX PHARMACEUTICALS-2019-007956

PATIENT
  Sex: Male

DRUGS (7)
  1. SYMDEKO [Suspect]
     Active Substance: IVACAFTOR\TEZACAFTOR
     Indication: Cystic fibrosis
     Dosage: 1 TABLET (100 MG TEZACAFTOR/150 MG IVACAFTOR AND 150 MG IVACAFTOR), BID
     Route: 048
     Dates: start: 201902
  2. CREON [Concomitant]
     Active Substance: PANCRELIPASE AMYLASE\PANCRELIPASE LIPASE\PANCRELIPASE PROTEASE
  3. ALBUTEROL [Concomitant]
     Active Substance: ALBUTEROL
     Route: 055
  4. TOBRAMYCIN [Concomitant]
     Active Substance: TOBRAMYCIN
     Route: 055
  5. SODIUM CHLORIDE [Concomitant]
     Active Substance: SODIUM CHLORIDE
  6. AZITHROMYCIN [Concomitant]
     Active Substance: AZITHROMYCIN
  7. PULMOZYME [Concomitant]
     Active Substance: DORNASE ALFA

REACTIONS (3)
  - Pneumonia bacterial [Unknown]
  - Sepsis [Unknown]
  - Somnolence [Unknown]

NARRATIVE: CASE EVENT DATE: 20190101
